FAERS Safety Report 6113203-5 (Version None)
Quarter: 2009Q1

REPORT INFORMATION
  Report Type: 
  Country: None (occurrence: None)
  Receive Date: 20090312
  Receipt Date: 20090304
  Transmission Date: 20090719
  Serious: Yes (Other)
  Sender: FDA-Public Use
  Company Number: BR-ABBOTT-09P-020-0560581-00

PATIENT
  Age: 2 Year
  Sex: Male

DRUGS (2)
  1. DEPAKOTE [Suspect]
     Indication: INFANTILE SPASMS
     Route: 048
  2. DEPAKOTE [Suspect]

REACTIONS (3)
  - INFANTILE SPASMS [None]
  - LEUKOPENIA [None]
  - THROMBOCYTOPENIA [None]
